FAERS Safety Report 4479118-3 (Version None)
Quarter: 2004Q3

REPORT INFORMATION
  Report Type: 
  Country: None (occurrence: None)
  Receive Date: 20040923
  Receipt Date: 20040708
  Transmission Date: 20050211
  Serious: Yes (Other)
  Sender: FDA-Public Use
  Company Number: 207711

PATIENT
  Age: 59 Year
  Sex: Male
  Weight: 96.1 kg

DRUGS (7)
  1. AVASTIN [Suspect]
     Indication: COLORECTAL CANCER METASTATIC
     Dosage: 500 MG, Q2W, INTRAVENOUS
     Route: 042
     Dates: start: 20040325, end: 20040429
  2. FLUOROURACIL [Concomitant]
  3. OXALIPLATIN [Concomitant]
  4. LEUCOVORIN CALCIUM [Concomitant]
  5. ASPIRIN [Concomitant]
  6. COUMADIN [Concomitant]
  7. VITAMIN E [Concomitant]

REACTIONS (1)
  - HAEMATOMA [None]
